FAERS Safety Report 10093379 (Version 1)
Quarter: 2014Q2

REPORT INFORMATION
  Report Type: Spontaneous
  Country: US (occurrence: US)
  Receive Date: 20140421
  Receipt Date: 20140421
  Transmission Date: 20141212
  Serious: No
  Sender: FDA-Public Use
  Company Number: US-SA-2013SA121143

PATIENT
  Sex: Female

DRUGS (4)
  1. ALLEGRA [Suspect]
     Dosage: TAKEN FROM-THREE WEEKS AGO
     Route: 048
  2. ALL OTHER THERAPEUTIC PRODUCTS [Concomitant]
  3. ASPIRIN [Concomitant]
     Indication: CARDIAC DISORDER
  4. LISINOPRIL [Concomitant]

REACTIONS (4)
  - Ear discomfort [Unknown]
  - Tinnitus [Unknown]
  - Stress [Unknown]
  - Head discomfort [Unknown]
